FAERS Safety Report 22956533 (Version 2)
Quarter: 2025Q1

REPORT INFORMATION
  Report Type: Spontaneous
  Country: CA (occurrence: CA)
  Receive Date: 20230919
  Receipt Date: 20250131
  Transmission Date: 20250409
  Serious: Yes (Life-Threatening, Hospitalization)
  Sender: ASSERTIO THERAPEUTICS
  Company Number: 06498605

PATIENT
  Age: 3 Decade
  Sex: Male

DRUGS (45)
  1. DICLOFENAC POTASSIUM [Suspect]
     Active Substance: DICLOFENAC POTASSIUM
     Indication: Neuralgia
     Route: 065
  2. ACETAMINOPHEN [Suspect]
     Active Substance: ACETAMINOPHEN
     Indication: Neuralgia
     Dosage: 3900 MG, QD
     Route: 065
  3. ACETAMINOPHEN [Suspect]
     Active Substance: ACETAMINOPHEN
     Dosage: 2600 MG, QD
     Route: 065
  4. ACETAMINOPHEN [Suspect]
     Active Substance: ACETAMINOPHEN
     Route: 065
  5. GABAPENTIN [Suspect]
     Active Substance: GABAPENTIN
     Indication: Neuralgia
     Dosage: 1200 MG, QD
     Route: 048
  6. GABAPENTIN [Suspect]
     Active Substance: GABAPENTIN
     Dosage: 1800 MG, QD
     Route: 048
  7. GABAPENTIN [Suspect]
     Active Substance: GABAPENTIN
     Dosage: 3600 MG, QD
     Route: 065
  8. GABAPENTIN [Suspect]
     Active Substance: GABAPENTIN
     Dosage: 900 MG, QD
     Route: 065
  9. GABAPENTIN [Suspect]
     Active Substance: GABAPENTIN
     Dosage: 300 MG, QD
     Route: 048
  10. GABAPENTIN [Suspect]
     Active Substance: GABAPENTIN
     Dosage: 3900 MG, QD
     Route: 065
  11. GABAPENTIN [Suspect]
     Active Substance: GABAPENTIN
     Route: 065
  12. GABAPENTIN [Suspect]
     Active Substance: GABAPENTIN
     Route: 048
  13. HYDROMORPHONE HYDROCHLORIDE [Suspect]
     Active Substance: HYDROMORPHONE HYDROCHLORIDE
     Indication: Neuralgia
     Route: 048
  14. IBUPROFEN [Suspect]
     Active Substance: IBUPROFEN
     Indication: Neuralgia
     Dosage: 1600 MG, QD
     Route: 065
  15. NABILONE [Suspect]
     Active Substance: NABILONE
     Indication: Neuralgia
     Dosage: 6 MG, QD
     Route: 065
  16. NABILONE [Suspect]
     Active Substance: NABILONE
     Dosage: 2 MG, QD
     Route: 065
  17. NABILONE [Suspect]
     Active Substance: NABILONE
     Route: 065
  18. OLANZAPINE [Suspect]
     Active Substance: OLANZAPINE
     Indication: Neuralgia
     Dosage: 3 MG, QD
     Route: 065
  19. OLANZAPINE [Suspect]
     Active Substance: OLANZAPINE
     Dosage: 2.5 MG, QD
     Route: 065
  20. OLANZAPINE [Suspect]
     Active Substance: OLANZAPINE
     Route: 065
  21. PHENYTOIN [Suspect]
     Active Substance: PHENYTOIN
     Indication: Neuralgia
     Dosage: 1500 MG, QD
     Route: 065
  22. PHENYTOIN [Suspect]
     Active Substance: PHENYTOIN
     Route: 065
  23. VENLAFAXINE HYDROCHLORIDE [Suspect]
     Active Substance: VENLAFAXINE HYDROCHLORIDE
     Indication: Neuralgia
     Route: 065
  24. VENLAFAXINE HYDROCHLORIDE [Suspect]
     Active Substance: VENLAFAXINE HYDROCHLORIDE
     Route: 065
  25. ZOPICLONE [Suspect]
     Active Substance: ZOPICLONE
     Indication: Neuralgia
     Route: 065
  26. ZOPICLONE [Suspect]
     Active Substance: ZOPICLONE
     Route: 065
  27. DILAUDID [Suspect]
     Active Substance: HYDROMORPHONE HYDROCHLORIDE
     Indication: Neuralgia
     Dosage: 7 MG, QD
     Route: 065
  28. DILAUDID [Suspect]
     Active Substance: HYDROMORPHONE HYDROCHLORIDE
     Dosage: 30 MG, QD
     Route: 065
  29. DILAUDID [Suspect]
     Active Substance: HYDROMORPHONE HYDROCHLORIDE
     Route: 042
  30. DILAUDID [Suspect]
     Active Substance: HYDROMORPHONE HYDROCHLORIDE
     Route: 042
  31. FENTANYL [Suspect]
     Active Substance: FENTANYL
     Indication: Neuralgia
     Dosage: 37.5 MICROGRAM, QH
     Route: 065
  32. FENTANYL [Suspect]
     Active Substance: FENTANYL
     Dosage: 25 MCG, EVERY 1 HOUR
     Route: 065
  33. FENTANYL [Suspect]
     Active Substance: FENTANYL
     Route: 065
  34. FENTANYL [Suspect]
     Active Substance: FENTANYL
     Route: 065
  35. FENTANYL [Suspect]
     Active Substance: FENTANYL
     Route: 065
  36. FENTANYL [Suspect]
     Active Substance: FENTANYL
     Route: 062
  37. KETAMINE [Suspect]
     Active Substance: KETAMINE
     Indication: Neuralgia
     Dosage: 30 MG, QD
     Route: 065
  38. KETAMINE [Suspect]
     Active Substance: KETAMINE
     Dosage: 40 MG, QD
     Route: 065
  39. KETAMINE [Suspect]
     Active Substance: KETAMINE
     Route: 048
  40. KETAMINE [Suspect]
     Active Substance: KETAMINE
     Route: 042
  41. LIDOCAINE HYDROCHLORIDE [Suspect]
     Active Substance: LIDOCAINE HYDROCHLORIDE
     Indication: Neuralgia
     Dosage: 3.84 MG, QH
     Route: 050
  42. LIDOCAINE HYDROCHLORIDE [Suspect]
     Active Substance: LIDOCAINE HYDROCHLORIDE
     Dosage: 3.84 MG, QH
     Route: 042
  43. LIDOCAINE HYDROCHLORIDE [Suspect]
     Active Substance: LIDOCAINE HYDROCHLORIDE
     Dosage: 3.84 MG, QH
     Route: 042
  44. VENLAFAXINE [Suspect]
     Active Substance: VENLAFAXINE HYDROCHLORIDE
     Indication: Neuralgia
     Route: 065
  45. HUMAN IMMUNOGLOBULIN G [Suspect]
     Active Substance: HUMAN IMMUNOGLOBULIN G
     Indication: Guillain-Barre syndrome
     Dosage: 400 MG/KG, QD
     Route: 042

REACTIONS (4)
  - Inspiratory capacity decreased [Unknown]
  - Off label use [Unknown]
  - Drug ineffective [Unknown]
  - Drug ineffective for unapproved indication [Unknown]
